FAERS Safety Report 7245129-8 (Version None)
Quarter: 2011Q1

REPORT INFORMATION
  Report Type: 
  Country: None (occurrence: None)
  Receive Date: 20110126
  Receipt Date: 20110120
  Transmission Date: 20110831
  Serious: Yes (Other)
  Sender: FDA-Public Use
  Company Number: GB-PFIZER INC-2010130308

PATIENT
  Age: 66 Year
  Sex: Female
  Weight: 60 kg

DRUGS (2)
  1. XALATAN [Suspect]
     Indication: INTRAOCULAR PRESSURE INCREASED
     Dosage: 1 DROP AT NIGHT, BOTH EYES
     Route: 047
     Dates: start: 20100908, end: 20100924
  2. ACETYLSALICYLIC ACID [Concomitant]
     Indication: RETINAL VEIN OCCLUSION
     Dosage: 75 MG, UNK
     Route: 048
     Dates: start: 20100601, end: 20100907

REACTIONS (7)
  - NASAL DISCOMFORT [None]
  - DIPLOPIA [None]
  - EYE IRRITATION [None]
  - CONJUNCTIVITIS [None]
  - DRY EYE [None]
  - EYE PAIN [None]
  - NASAL DRYNESS [None]
